FAERS Safety Report 22831081 (Version 3)
Quarter: 2024Q2

REPORT INFORMATION
  Report Type: Spontaneous
  Country: US (occurrence: US)
  Receive Date: 20230817
  Receipt Date: 20240429
  Transmission Date: 20240716
  Serious: No
  Sender: FDA-Public Use
  Company Number: US-SPECGX-T202301061

PATIENT
  Sex: Male
  Weight: 86 kg

DRUGS (2)
  1. OXYCODONE [Suspect]
     Active Substance: OXYCODONE\OXYCODONE HYDROCHLORIDE
     Indication: Pain
     Dosage: UNK (1 TO 2 TABLETS 4 TIMES A DAY AS NEEDED)
     Route: 048
     Dates: start: 2023
  2. METHADONE [Suspect]
     Active Substance: METHADONE HYDROCHLORIDE
     Indication: Insomnia
     Dosage: 110 MILLIGRAM, WEEKLY
     Route: 065

REACTIONS (3)
  - Somnolence [Not Recovered/Not Resolved]
  - Drug ineffective [Unknown]
  - Product use in unapproved indication [Unknown]

NARRATIVE: CASE EVENT DATE: 20230101
